FAERS Safety Report 10241772 (Version 1)
Quarter: 2014Q1

REPORT INFORMATION
  Report Type: Spontaneous
  Country: US (occurrence: None)
  Receive Date: 20140306
  Receipt Date: 20140306
  Transmission Date: 20141002
  Serious: Yes (Hospitalization, Other)
  Sender: FDA-Public Use
  Company Number: 163-21880-13122426

PATIENT
  Age: 64 Year
  Sex: Female
  Weight: 83.92 kg

DRUGS (2)
  1. REVLIMID (LENALIDOMIDE) (25 MILLIGRAM, CAPSULES) [Suspect]
     Indication: PLASMA CELL MYELOMA
     Route: 048
     Dates: start: 201302, end: 20131001
  2. STEROIDS (CORTICOSTEROIDS) (UNKNOWN) [Concomitant]

REACTIONS (4)
  - Immunosuppression [None]
  - Staphylococcal infection [None]
  - Asthenia [None]
  - Alopecia [None]
